FAERS Safety Report 4906777-0 (Version None)
Quarter: 2006Q1

REPORT INFORMATION
  Report Type: 
  Country: None (occurrence: None)
  Receive Date: 20060209
  Receipt Date: 20060131
  Transmission Date: 20060701
  Serious: Yes (Hospitalization)
  Sender: FDA-Public Use
  Company Number: SE-ROCHE-434326

PATIENT
  Age: 20 Year
  Sex: Female
  Weight: 63 kg

DRUGS (1)
  1. ROACCUTAN [Suspect]
     Indication: ACNE
     Route: 048
     Dates: start: 20051215, end: 20060126

REACTIONS (5)
  - BACK PAIN [None]
  - BLOOD CREATINE INCREASED [None]
  - HAEMATURIA [None]
  - PROTEINURIA [None]
  - PYREXIA [None]
